FAERS Safety Report 25007700 (Version 4)
Quarter: 2025Q3

REPORT INFORMATION
  Report Type: Report from Study
  Country: JP (occurrence: JP)
  Receive Date: 20250225
  Receipt Date: 20250723
  Transmission Date: 20251021
  Serious: Yes (Hospitalization, Other)
  Sender: BAUSCH AND LOMB
  Company Number: JP-BAUSCH-BL-2025-001351

PATIENT
  Age: 77 Year
  Sex: Female
  Weight: 36.4 kg

DRUGS (2)
  1. DEMSER [Suspect]
     Active Substance: METYROSINE
     Indication: Blood catecholamines increased
     Route: 048
     Dates: start: 20250108, end: 20250111
  2. DOXAZOSIN [Concomitant]
     Active Substance: DOXAZOSIN MESYLATE
     Indication: Product used for unknown indication
     Dates: start: 20150612

REACTIONS (4)
  - Urinary retention [Unknown]
  - Diarrhoea [Recovered/Resolved]
  - Bladder neoplasm [Unknown]
  - Insomnia [Unknown]

NARRATIVE: CASE EVENT DATE: 20250101
